FAERS Safety Report 24844704 (Version 2)
Quarter: 2025Q2

REPORT INFORMATION
  Report Type: Other
  Country: US (occurrence: US)
  Receive Date: 20250115
  Receipt Date: 20250429
  Transmission Date: 20250717
  Serious: No
  Sender: TRAVERE THERAPEUTICS
  Company Number: US-TRAVERE-2024TVT01305

PATIENT
  Age: 66 Year
  Sex: Male

DRUGS (8)
  1. FILSPARI [Suspect]
     Active Substance: SPARSENTAN
     Indication: IgA nephropathy
     Route: 048
     Dates: start: 20240904
  2. ATORVASTATIN [Concomitant]
     Active Substance: ATORVASTATIN
  3. VITAMIN D3 [Concomitant]
     Active Substance: CHOLECALCIFEROL
  4. VITAMIN B12 [Concomitant]
     Active Substance: CYANOCOBALAMIN
  5. JUBLIA [Concomitant]
     Active Substance: EFINACONAZOLE
  6. SYNTHROID [Concomitant]
     Active Substance: LEVOTHYROXINE SODIUM
  7. SKYRIZI [Concomitant]
     Active Substance: RISANKIZUMAB-RZAA
  8. TAVABOROLE [Concomitant]
     Active Substance: TAVABOROLE

REACTIONS (1)
  - Pancreatic cyst [None]

NARRATIVE: CASE EVENT DATE: 20240913
